FAERS Safety Report 5848653-5 (Version None)
Quarter: 2008Q3

REPORT INFORMATION
  Report Type: 
  Country: None (occurrence: None)
  Receive Date: 20080818
  Receipt Date: 20080814
  Transmission Date: 20090109
  Serious: Yes (Death)
  Sender: FDA-Public Use
  Company Number: IT-SANOFI-SYNTHELABO-F01200801330

PATIENT
  Sex: Female

DRUGS (6)
  1. GRANISETRON HCL [Concomitant]
     Dates: start: 20080731, end: 20080802
  2. LANSOPRAZOL [Concomitant]
     Dates: start: 20080731, end: 20080802
  3. BEVACIZUMAB [Suspect]
     Dosage: 550 MG
     Route: 041
     Dates: start: 20080731, end: 20080731
  4. OXALIPLATIN [Suspect]
     Indication: COLON CANCER METASTATIC
     Dosage: 240 MG
     Route: 041
     Dates: start: 20080731, end: 20080731
  5. CAPECITABINE [Suspect]
     Route: 048
     Dates: start: 20080731
  6. CAPECITABINE [Suspect]
     Route: 048
     Dates: start: 20080731

REACTIONS (1)
  - CARDIO-RESPIRATORY ARREST [None]
